FAERS Safety Report 8268647 (Version 2)
Quarter: 2018Q2

REPORT INFORMATION
  Report Type: Spontaneous
  Country: GB (occurrence: GB)
  Receive Date: 20111130
  Receipt Date: 20180430
  Transmission Date: 20180711
  Serious: Yes (Other)
  Sender: FDA-Public Use
  Company Number: PHHY2011GB29781

PATIENT
  Age: 74 Year
  Sex: Female

DRUGS (1)
  1. DESFERRIOXAMINE MESYLATE [Suspect]
     Active Substance: DEFEROXAMINE MESYLATE
     Indication: MYELOFIBROSIS
     Dosage: 1.5 G, UNK
     Route: 058

REACTIONS (10)
  - Optic neuropathy [Unknown]
  - Visual acuity reduced [Unknown]
  - Corneal oedema [Recovered/Resolved]
  - Conjunctival hyperaemia [Recovered/Resolved]
  - Ocular toxicity [Unknown]
  - Cataract [Recovered/Resolved]
  - Visual field defect [Unknown]
  - Corneal disorder [Recovered/Resolved]
  - Colour vision tests abnormal [Unknown]
  - Deafness neurosensory [Unknown]
